FAERS Safety Report 19135243 (Version 2)
Quarter: 2021Q3

REPORT INFORMATION
  Report Type: Spontaneous
  Country: US (occurrence: US)
  Receive Date: 20210414
  Receipt Date: 20210819
  Transmission Date: 20211014
  Serious: Yes (Death, Disabling, Other)
  Sender: FDA-Public Use
  Company Number: US-PURDUE-USA-2021-0243800

PATIENT
  Age: 21 Year
  Sex: Male

DRUGS (1)
  1. OXYCODONE HYDROCHLORIDE (SIMILAR TO NDA 22?272) [Suspect]
     Active Substance: OXYCODONE HYDROCHLORIDE
     Indication: WISDOM TEETH REMOVAL
     Dosage: UNKNOWN
     Route: 065

REACTIONS (3)
  - Sleep disorder [Unknown]
  - Injury [Fatal]
  - Drug dependence [Unknown]

NARRATIVE: CASE EVENT DATE: 20100517
